FAERS Safety Report 8694252 (Version 3)
Quarter: 2013Q1

REPORT INFORMATION
  Report Type: Spontaneous
  Country: US (occurrence: US)
  Receive Date: 20120731
  Receipt Date: 20130201
  Transmission Date: 20140127
  Serious: Yes (Hospitalization, Other)
  Sender: FDA-Public Use
  Company Number: US-PFIZER INC-2012181935

PATIENT
  Age: 56 Year
  Sex: Male

DRUGS (2)
  1. PIPERACILLIN/TAZOBACTAM [Suspect]
     Indication: OSTEOMYELITIS
     Dosage: UNK
  2. MEROPENEM [Interacting]
     Indication: NOSOCOMIAL INFECTION
     Dosage: UNK

REACTIONS (4)
  - Drug interaction [Recovering/Resolving]
  - Renal impairment [Recovering/Resolving]
  - Tubulointerstitial nephritis [Recovered/Resolved]
  - Rash [Recovering/Resolving]
